FAERS Safety Report 19561164 (Version 1)
Quarter: 2021Q3

REPORT INFORMATION
  Report Type: Spontaneous
  Country: FR (occurrence: FR)
  Receive Date: 20210716
  Receipt Date: 20210716
  Transmission Date: 20211014
  Serious: Yes (Death)
  Sender: FDA-Public Use
  Company Number: FR-SUN PHARMACEUTICAL INDUSTRIES LTD-2021RR-304643

PATIENT
  Age: 72 Year
  Sex: Male
  Weight: 65 kg

DRUGS (2)
  1. OXALIPLATIN. [Suspect]
     Active Substance: OXALIPLATIN
     Indication: ADENOCARCINOMA OF COLON
     Dosage: UNKNOWN
     Route: 042
     Dates: start: 202104, end: 20210507
  2. FLUOROURACILE [Interacting]
     Active Substance: FLUOROURACIL
     Indication: ADENOCARCINOMA OF COLON
     Dosage: UNKNOWN
     Route: 042
     Dates: start: 202104, end: 20210507

REACTIONS (3)
  - Aplasia [Fatal]
  - Drug interaction [Fatal]
  - Septic shock [Fatal]

NARRATIVE: CASE EVENT DATE: 20210514
